FAERS Safety Report 9737949 (Version 2)
Quarter: 2013Q4

REPORT INFORMATION
  Report Type: Spontaneous
  Country: US (occurrence: US)
  Receive Date: 20131208
  Receipt Date: 20131208
  Transmission Date: 20140711
  Serious: No
  Sender: FDA-Public Use
  Company Number: US-SA-RENA-1002137

PATIENT
  Sex: 0

DRUGS (2)
  1. RENVELA [Suspect]
     Indication: PRODUCT USED FOR UNKNOWN INDICATION
     Dosage: RENVELA ORAL TABLET 800 MG PT. IS TAKING 3 W/MEALS AND SNACKS
     Route: 048
  2. RENVELA [Suspect]
     Indication: PRODUCT USED FOR UNKNOWN INDICATION
     Dosage: RENVELA 4W/MEALS AND 3 W/SNACKS
     Route: 065

REACTIONS (4)
  - Constipation [Recovered/Resolved]
  - Diarrhoea [Unknown]
  - Constipation [Not Recovered/Not Resolved]
  - Abdominal pain [Not Recovered/Not Resolved]
